FAERS Safety Report 5144776-7 (Version None)
Quarter: 2006Q4

REPORT INFORMATION
  Report Type: 
  Country: None (occurrence: None)
  Receive Date: 20061107
  Receipt Date: 20061025
  Transmission Date: 20070319
  Serious: Yes (Hospitalization)
  Sender: FDA-Public Use
  Company Number: PHHO2006JP17874

PATIENT
  Age: 74 Year
  Sex: Female

DRUGS (4)
  1. MAGNESIUM OXIDE [Concomitant]
     Indication: CONSTIPATION
  2. DIOVAN [Suspect]
     Indication: HYPERTENSION
     Dosage: 40 MG, QD
     Route: 048
     Dates: start: 20031031, end: 20050326
  3. ADALAT [Concomitant]
     Indication: HYPERTENSION
  4. POLLAKISU [Concomitant]
     Indication: POLLAKIURIA

REACTIONS (2)
  - DYSARTHRIA [None]
  - THROMBOTIC STROKE [None]
